FAERS Safety Report 6055295-8 (Version None)
Quarter: 2009Q1

REPORT INFORMATION
  Report Type: 
  Country: None (occurrence: None)
  Receive Date: 20090128
  Receipt Date: 20090119
  Transmission Date: 20090719
  Serious: Yes (Other)
  Sender: FDA-Public Use
  Company Number: BR-ABBOTT-08P-020-0494163-00

PATIENT
  Sex: Male
  Weight: 84 kg

DRUGS (3)
  1. DEPAKENE [Suspect]
     Indication: CONVULSION
     Dosage: ONE TABLET EVERY 12 HOURS
     Route: 048
     Dates: start: 20070101, end: 20080901
  2. DEPAKENE [Suspect]
  3. PHENOBARBITAL TAB [Concomitant]
     Indication: CONVULSION
     Route: 048
     Dates: start: 19980101

REACTIONS (7)
  - AMNESIA [None]
  - CONVULSION [None]
  - DISTURBANCE IN ATTENTION [None]
  - MEMORY IMPAIRMENT [None]
  - PETIT MAL EPILEPSY [None]
  - REFLEXES ABNORMAL [None]
  - SOMNOLENCE [None]
